FAERS Safety Report 8861302 (Version 1)
Quarter: 2012Q4

REPORT INFORMATION
  Report Type: 
  Country: US (occurrence: US)
  Receive Date: 20121026
  Receipt Date: 20121026
  Transmission Date: 20130627
  Serious: No
  Sender: FDA-Public Use
  Company Number: US-PFIZER INC-2012267114

PATIENT
  Age: 56 Year
  Sex: Female
  Weight: 58.96 kg

DRUGS (2)
  1. LYRICA [Suspect]
     Indication: NEURALGIA
     Dosage: 75 mg, 2x/day
     Route: 048
     Dates: start: 20121021
  2. MELOXICAM [Concomitant]
     Dosage: UNK

REACTIONS (2)
  - Feeling abnormal [Not Recovered/Not Resolved]
  - Confusional state [Not Recovered/Not Resolved]
